FAERS Safety Report 25985072 (Version 1)
Quarter: 2025Q4

REPORT INFORMATION
  Report Type: Report from Study
  Country: EU (occurrence: EU)
  Receive Date: 20251031
  Receipt Date: 20251031
  Transmission Date: 20260118
  Serious: Yes (Death, Other)
  Sender: BAUSCH AND LOMB
  Company Number: EU-BAUSCH-BH-2025-019569

PATIENT
  Age: 57 Year
  Sex: Male

DRUGS (9)
  1. AZATHIOPRINE [Suspect]
     Active Substance: AZATHIOPRINE
     Indication: Interstitial lung disease
     Dosage: BEFORE THE FIRST RITUXIMAB TREATMENT
     Route: 065
  2. AZATHIOPRINE [Suspect]
     Active Substance: AZATHIOPRINE
     Dosage: AFTER THE FIRST RITUXIMAB TREATMENT
     Route: 065
  3. CYCLOSPORINE [Suspect]
     Active Substance: CYCLOSPORINE
     Indication: Interstitial lung disease
     Dosage: AFTER THE FIRST RITUXIMAB TREATMENT
     Route: 065
  4. CYCLOPHOSPHAMIDE [Suspect]
     Active Substance: CYCLOPHOSPHAMIDE
     Indication: Interstitial lung disease
     Dosage: BEFORE THE FIRST RITUXIMAB TREATMENT
     Route: 065
  5. CYCLOPHOSPHAMIDE [Suspect]
     Active Substance: CYCLOPHOSPHAMIDE
     Dosage: AFTER THE FIRST RITUXIMAB TREATMENT
     Route: 065
  6. PREDNISONE [Suspect]
     Active Substance: PREDNISONE
     Indication: Interstitial lung disease
     Dosage: GREATER THAN 10 MG, BEFORE THE FIRST RITUXIMAB TREATMENT
     Route: 065
  7. PREDNISONE [Suspect]
     Active Substance: PREDNISONE
     Dosage: LESS THAN 10 MG, AFTER THE FIRST RITUXIMAB TREATMENT
     Route: 065
  8. MYCOPHENOLATE MOFETIL [Suspect]
     Active Substance: MYCOPHENOLATE MOFETIL
     Indication: Interstitial lung disease
     Dosage: AFTER THE FIRST RITUXIMAB TREATMENT
     Route: 065
  9. RITUXIMAB [Suspect]
     Active Substance: RITUXIMAB
     Indication: Interstitial lung disease
     Route: 065

REACTIONS (2)
  - Pneumocystis jirovecii pneumonia [Fatal]
  - Treatment failure [Unknown]
